FAERS Safety Report 21519299 (Version 1)
Quarter: 2022Q4

REPORT INFORMATION
  Report Type: Spontaneous
  Country: US (occurrence: None)
  Receive Date: 20221027
  Receipt Date: 20221027
  Transmission Date: 20230113
  Serious: Yes (Life-Threatening, Disabling)
  Sender: FDA-Public Use
  Company Number: None

PATIENT
  Age: 72 Year
  Sex: Female
  Weight: 61.23 kg

DRUGS (1)
  1. REPATHA [Suspect]
     Active Substance: EVOLOCUMAB
     Indication: Blood cholesterol increased
     Dosage: OTHER FREQUENCY : 1 TIME EVER 14 DAY;?
     Route: 042
     Dates: start: 20220629, end: 20220730

REACTIONS (12)
  - Back pain [None]
  - Peripheral swelling [None]
  - Vision blurred [None]
  - Dizziness [None]
  - Decreased appetite [None]
  - Asthenia [None]
  - Joint swelling [None]
  - Dyspnoea [None]
  - Throat tightness [None]
  - Gingival swelling [None]
  - Panic attack [None]
  - Injection related reaction [None]

NARRATIVE: CASE EVENT DATE: 20220630
